FAERS Safety Report 6787810-0 (Version None)
Quarter: 2010Q2

REPORT INFORMATION
  Report Type: 
  Country: None (occurrence: None)
  Receive Date: 20100623
  Receipt Date: 20090130
  Transmission Date: 20101027
  Serious: No
  Sender: FDA-Public Use
  Company Number: US-PFIZER INC-2007064701

PATIENT
  Sex: Male
  Weight: 91 kg

DRUGS (2)
  1. SUTENT [Suspect]
     Indication: RENAL CELL CARCINOMA
     Dosage: CYCLIC: 4 WEEKS ON, 2 WEEKS OFF
     Route: 048
     Dates: start: 20070423
  2. SUTENT [Suspect]
     Indication: METASTASES TO LUNG

REACTIONS (12)
  - BLISTER [None]
  - DECREASED APPETITE [None]
  - DEPRESSION [None]
  - DIARRHOEA [None]
  - FATIGUE [None]
  - GASTROINTESTINAL ULCER [None]
  - HYPERAESTHESIA [None]
  - HYPERSOMNIA [None]
  - INSOMNIA [None]
  - ORAL PAIN [None]
  - WEIGHT INCREASED [None]
  - YELLOW SKIN [None]
